FAERS Safety Report 24257324 (Version 1)
Quarter: 2024Q3

REPORT INFORMATION
  Report Type: Spontaneous
  Country: US (occurrence: US)
  Receive Date: 20240828
  Receipt Date: 20240828
  Transmission Date: 20241016
  Serious: Yes (Other)
  Sender: DR REDDYS
  Company Number: US-DRL-USA-LIT/USA/24/0012415

PATIENT
  Age: 51 Year
  Sex: Female

DRUGS (2)
  1. DOXYCYCLINE [Suspect]
     Active Substance: DOXYCYCLINE\DOXYCYCLINE HYCLATE
     Indication: Hidradenitis
     Route: 048
  2. CHLORHEXIDINE [Concomitant]
     Active Substance: CHLORHEXIDINE
     Indication: Hidradenitis

REACTIONS (1)
  - Drug ineffective for unapproved indication [Unknown]
